FAERS Safety Report 15167618 (Version 3)
Quarter: 2018Q4

REPORT INFORMATION
  Report Type: Spontaneous
  Country: US (occurrence: US)
  Receive Date: 20180719
  Receipt Date: 20181019
  Transmission Date: 20190204
  Serious: Yes (Hospitalization, Other)
  Sender: FDA-Public Use
  Company Number: US-TAKEDA-2018TUS022729

PATIENT
  Age: 56 Year
  Sex: Male
  Weight: 68.9 kg

DRUGS (71)
  1. PROTONIX [Suspect]
     Active Substance: PANTOPRAZOLE SODIUM
     Dosage: UNK
     Route: 048
  2. NEXIUM 24HR [Suspect]
     Active Substance: ESOMEPRAZOLE MAGNESIUM
     Indication: SCLERODERMA
     Dosage: 40 MG, QD
     Route: 048
     Dates: start: 2014
  3. NEXIUM [Suspect]
     Active Substance: ESOMEPRAZOLE MAGNESIUM
     Indication: HIATUS HERNIA
  4. PRILOSEC [Suspect]
     Active Substance: OMEPRAZOLE MAGNESIUM
     Indication: GASTROOESOPHAGEAL REFLUX DISEASE
     Dosage: 30 MG, QD
     Route: 048
  5. OMEPRAZOLE MAGNESIUM. [Suspect]
     Active Substance: OMEPRAZOLE MAGNESIUM
     Indication: HYPERTENSION
     Dosage: 25 MG, BID
     Route: 048
     Dates: start: 2015
  6. PHENOBARBITAL. [Suspect]
     Active Substance: PHENOBARBITAL
     Indication: AURA
     Dosage: 130 MG, BID
     Route: 065
     Dates: start: 1960
  7. PHENOBARBITAL. [Suspect]
     Active Substance: PHENOBARBITAL
     Indication: SEIZURE
     Dosage: UNK
     Route: 065
  8. ZINC. [Concomitant]
     Active Substance: ZINC
     Indication: ANXIETY
     Dosage: 0.5 MG, BID
     Route: 048
     Dates: start: 201504
  9. VITAMIN D [Concomitant]
     Active Substance: CHOLECALCIFEROL
     Indication: RENAL DISORDER
     Dosage: 10000 IU, UNK
     Route: 048
  10. SIMVASTIN [Concomitant]
     Active Substance: SIMVASTATIN
     Indication: BLOOD CHOLESTEROL INCREASED
     Dosage: UNK
  11. EFFIENT [Concomitant]
     Active Substance: PRASUGREL HYDROCHLORIDE
     Dosage: UNK
  12. OMEPRAZOLE MAGNESIUM. [Suspect]
     Active Substance: OMEPRAZOLE MAGNESIUM
     Dosage: UNK
     Route: 048
  13. ESOMEPRAZOLE MAGNESIUM. [Suspect]
     Active Substance: ESOMEPRAZOLE MAGNESIUM
     Indication: PRODUCT USED FOR UNKNOWN INDICATION
     Dosage: 40 MG, UNK
     Route: 048
  14. ESOMEPRAZOLE MAGNESIUM. [Suspect]
     Active Substance: ESOMEPRAZOLE MAGNESIUM
     Dosage: 40 MG, UNK
     Route: 048
  15. ZINC. [Concomitant]
     Active Substance: ZINC
     Dosage: UNK
     Route: 045
  16. IMDUR [Concomitant]
     Active Substance: ISOSORBIDE MONONITRATE
     Dosage: UNK
  17. IMURAN [Concomitant]
     Active Substance: AZATHIOPRINE
     Indication: IMMUNE SYSTEM DISORDER
     Dosage: 50 MG, QD
     Route: 048
     Dates: start: 2012
  18. PROTONIX [Suspect]
     Active Substance: PANTOPRAZOLE SODIUM
     Indication: PRODUCT USED FOR UNKNOWN INDICATION
     Dosage: UNK
     Route: 048
  19. NEXIUM [Suspect]
     Active Substance: ESOMEPRAZOLE MAGNESIUM
     Indication: DYSPHAGIA
     Dosage: UNK
     Route: 048
     Dates: start: 20041129
  20. NEXIUM [Suspect]
     Active Substance: ESOMEPRAZOLE MAGNESIUM
     Indication: ABDOMINAL DISCOMFORT
  21. ZINC. [Concomitant]
     Active Substance: ZINC
     Indication: MORPHOEA
     Dosage: UNK, QD
     Route: 048
  22. ZINC. [Concomitant]
     Active Substance: ZINC
     Indication: PROSTATOMEGALY
     Dosage: UNK
     Route: 045
  23. ZINC. [Concomitant]
     Active Substance: ZINC
     Dosage: UNK, QD
  24. LIPITOR [Concomitant]
     Active Substance: ATORVASTATIN CALCIUM
     Indication: ANGIOPATHY
     Dosage: 40 MG, QD
     Dates: start: 201504
  25. NITROGLYCERIN. [Concomitant]
     Active Substance: NITROGLYCERIN
     Dosage: 0.4 MG, UNK
     Route: 060
  26. KEPPRA [Concomitant]
     Active Substance: LEVETIRACETAM
     Indication: SEIZURE
     Dosage: UNK
     Dates: start: 2016
  27. MYLANTA                            /07357001/ [Concomitant]
     Active Substance: CALCIUM CARBONATE
     Dosage: UNK
  28. NEXIUM 24HR [Suspect]
     Active Substance: ESOMEPRAZOLE MAGNESIUM
     Indication: GASTROOESOPHAGEAL REFLUX DISEASE
  29. NEXIUM [Suspect]
     Active Substance: ESOMEPRAZOLE MAGNESIUM
     Indication: HYPERCHLORHYDRIA
  30. NEXIUM [Suspect]
     Active Substance: ESOMEPRAZOLE MAGNESIUM
     Indication: THROAT IRRITATION
  31. OMEPRAZOLE MAGNESIUM. [Suspect]
     Active Substance: OMEPRAZOLE MAGNESIUM
     Dosage: 100 MG, BID
     Route: 048
     Dates: start: 2016
  32. LISINOPRIL. [Suspect]
     Active Substance: LISINOPRIL
     Dosage: UNK
     Route: 048
  33. ASPIRIN                            /00002701/ [Concomitant]
     Active Substance: ASPIRIN
     Indication: ANTICOAGULANT THERAPY
     Dosage: 225 MG, DAILY
     Route: 048
     Dates: start: 1990
  34. ZINC. [Concomitant]
     Active Substance: ZINC
     Indication: PROSTATIC DISORDER
     Dosage: 0.4 MG, QD
     Route: 048
  35. ZINC. [Concomitant]
     Active Substance: ZINC
     Indication: MULTIPLE ALLERGIES
     Dosage: 650 MG, BID
     Dates: start: 2012
  36. ZINC. [Concomitant]
     Active Substance: ZINC
     Dosage: 0.4 MG, UNK
  37. VITAMIN D [Concomitant]
     Active Substance: CHOLECALCIFEROL
     Dosage: 10000 IU, UNK
  38. NITROGLYCERIN. [Concomitant]
     Active Substance: NITROGLYCERIN
     Indication: CHEST PAIN
     Dosage: 0.4 MG, UNK
     Route: 060
  39. NEXIUM [Suspect]
     Active Substance: ESOMEPRAZOLE MAGNESIUM
     Indication: SCLERODERMA
     Dosage: UNK
     Route: 048
     Dates: start: 200411
  40. PRILOSEC [Suspect]
     Active Substance: OMEPRAZOLE MAGNESIUM
     Indication: DYSPHAGIA
     Dosage: 40 MG, QD
     Route: 048
     Dates: start: 1997
  41. OMEPRAZOLE MAGNESIUM. [Suspect]
     Active Substance: OMEPRAZOLE MAGNESIUM
     Dosage: UNK
     Route: 048
  42. LISINOPRIL. [Suspect]
     Active Substance: LISINOPRIL
     Indication: RENAL DISORDER
     Dosage: 5 MG, QD
     Route: 048
     Dates: start: 2012
  43. OMEPRAZOLE. [Suspect]
     Active Substance: OMEPRAZOLE
     Indication: DYSPHAGIA
     Dosage: UNK
     Route: 048
  44. ZINC. [Concomitant]
     Active Substance: ZINC
     Indication: SCLERODERMA
     Dosage: UNK
     Route: 048
  45. CRESTOR [Concomitant]
     Active Substance: ROSUVASTATIN CALCIUM
     Dosage: UNK
  46. NITROSTAT [Concomitant]
     Active Substance: NITROGLYCERIN
     Dosage: UNK
  47. PEPTO-BISMOL [Concomitant]
     Active Substance: BISMUTH SUBSALICYLATE
     Dosage: UNK
  48. NEXIUM [Suspect]
     Active Substance: ESOMEPRAZOLE MAGNESIUM
     Indication: GASTRIC ULCER
     Dosage: UNK
     Route: 048
     Dates: start: 200604, end: 201702
  49. NEXIUM [Suspect]
     Active Substance: ESOMEPRAZOLE MAGNESIUM
     Indication: GASTRIC PH DECREASED
  50. PRILOSEC [Suspect]
     Active Substance: OMEPRAZOLE MAGNESIUM
     Indication: HIATUS HERNIA
  51. OMEPRAZOLE MAGNESIUM. [Suspect]
     Active Substance: OMEPRAZOLE MAGNESIUM
     Dosage: 100 MG, BID
     Route: 048
  52. BRILINTA [Suspect]
     Active Substance: TICAGRELOR
     Indication: PRODUCT USED FOR UNKNOWN INDICATION
     Dosage: 60 MG, UNK
     Route: 048
     Dates: start: 20160506
  53. LISINOPRIL. [Suspect]
     Active Substance: LISINOPRIL
     Indication: BLOOD PRESSURE ABNORMAL
     Dosage: 5 MG, QD
     Route: 048
     Dates: start: 2016
  54. ZINC. [Concomitant]
     Active Substance: ZINC
     Dosage: UNK
  55. ZINC. [Concomitant]
     Active Substance: ZINC
     Dosage: UNK
  56. IMDUR [Concomitant]
     Active Substance: ISOSORBIDE MONONITRATE
     Indication: MYOCARDIAL INFARCTION
     Dosage: 120 MG, BID
     Route: 048
     Dates: start: 201504
  57. IMDUR [Concomitant]
     Active Substance: ISOSORBIDE MONONITRATE
     Dosage: 120 MG, QD
     Route: 048
  58. PREVACID [Suspect]
     Active Substance: LANSOPRAZOLE
     Indication: PRODUCT USED FOR UNKNOWN INDICATION
     Dosage: UNK
     Route: 048
  59. NEXIUM 24HR [Suspect]
     Active Substance: ESOMEPRAZOLE MAGNESIUM
     Indication: VOMITING
  60. NEXIUM 24HR [Suspect]
     Active Substance: ESOMEPRAZOLE MAGNESIUM
     Indication: DYSPHAGIA
  61. NEXIUM [Suspect]
     Active Substance: ESOMEPRAZOLE MAGNESIUM
     Indication: GASTROOESOPHAGEAL REFLUX DISEASE
     Dosage: 40 MG, QD
     Route: 048
     Dates: start: 1999
  62. NEXIUM [Suspect]
     Active Substance: ESOMEPRAZOLE MAGNESIUM
     Indication: HELICOBACTER INFECTION
  63. ASPIRIN                            /00002701/ [Concomitant]
     Active Substance: ASPIRIN
     Indication: PULMONARY EMBOLISM
     Dosage: 81 MG, QD
     Route: 048
  64. ZINC. [Concomitant]
     Active Substance: ZINC
     Indication: RENAL DISORDER
     Dosage: UNK
     Dates: start: 2016
  65. PREVACID [Suspect]
     Active Substance: LANSOPRAZOLE
     Dosage: UNK
     Route: 065
  66. NEXIUM [Suspect]
     Active Substance: ESOMEPRAZOLE MAGNESIUM
     Indication: DUODENAL ULCER
  67. NEXIUM [Suspect]
     Active Substance: ESOMEPRAZOLE MAGNESIUM
     Indication: VOMITING
  68. OMEPRAZOLE MAGNESIUM. [Suspect]
     Active Substance: OMEPRAZOLE MAGNESIUM
     Indication: DYSPHAGIA
     Dosage: 25 MG, QD
     Route: 048
     Dates: start: 201504
  69. OMEPRAZOLE MAGNESIUM. [Suspect]
     Active Substance: OMEPRAZOLE MAGNESIUM
     Dosage: 100 MG, BID
     Route: 048
  70. ZINC. [Concomitant]
     Active Substance: ZINC
     Indication: URINARY TRACT INFLAMMATION
     Dosage: 650 MG, BID
     Dates: start: 2012
  71. CALCITROL                          /00508501/ [Concomitant]
     Active Substance: CALCIUM CARBONATE\ERGOCALCIFEROL\RETINOL
     Indication: RENAL DISORDER
     Dosage: 0.25 MG, QD
     Route: 048
     Dates: start: 2012

REACTIONS (36)
  - Memory impairment [Unknown]
  - Retching [Unknown]
  - Product dose omission [Unknown]
  - Seizure [Recovered/Resolved]
  - Acute kidney injury [Unknown]
  - End stage renal disease [Not Recovered/Not Resolved]
  - Chest discomfort [Unknown]
  - Off label use [Unknown]
  - Drug ineffective [Unknown]
  - Hiatus hernia [Unknown]
  - Dyspnoea [Unknown]
  - Product use in unapproved indication [Unknown]
  - Intentional product misuse [Unknown]
  - Renal failure [Not Recovered/Not Resolved]
  - Vascular rupture [Unknown]
  - Flatulence [Unknown]
  - Pain [Unknown]
  - Myocardial infarction [Unknown]
  - Tubulointerstitial nephritis [Unknown]
  - Lupus nephritis [Unknown]
  - Vomiting [Unknown]
  - Ill-defined disorder [Unknown]
  - Coronary artery disease [Unknown]
  - CREST syndrome [Unknown]
  - Haemoglobin decreased [Unknown]
  - Dysphagia [Unknown]
  - Hypertension [Unknown]
  - Diarrhoea [Unknown]
  - Renal impairment [Unknown]
  - Prostatic disorder [Unknown]
  - Blood cholesterol increased [Unknown]
  - Prostatomegaly [Unknown]
  - Weight decreased [Unknown]
  - Intentional product use issue [Unknown]
  - Coronary artery occlusion [Unknown]
  - Choking [Unknown]

NARRATIVE: CASE EVENT DATE: 2011
